FAERS Safety Report 6976683-9 (Version None)
Quarter: 2010Q3

REPORT INFORMATION
  Report Type: 
  Country: None (occurrence: None)
  Receive Date: 20100910
  Receipt Date: 20100901
  Transmission Date: 20110219
  Serious: Yes (Hospitalization, Other)
  Sender: FDA-Public Use
  Company Number: US-ASTRAZENECA-2010SE41551

PATIENT
  Age: 1 Day
  Sex: Male
  Weight: 2.2 kg

DRUGS (3)
  1. SEROQUEL [Suspect]
     Route: 064
  2. CELEXA [Suspect]
     Route: 064
  3. COCAINE [Concomitant]

REACTIONS (6)
  - CATATONIA [None]
  - DYSKINESIA [None]
  - EYE MOVEMENT DISORDER [None]
  - HOSPITALISATION [None]
  - HYPOVENTILATION [None]
  - MUSCLE RIGIDITY [None]
